FAERS Safety Report 22007080 (Version 1)
Quarter: 2023Q1

REPORT INFORMATION
  Report Type: Spontaneous
  Country: FR (occurrence: FR)
  Receive Date: 20230217
  Receipt Date: 20230217
  Transmission Date: 20230418
  Serious: Yes (Other)
  Sender: FDA-Public Use
  Company Number: FR-SA-2023SA052613

PATIENT
  Age: 79 Year
  Sex: Male

DRUGS (1)
  1. CEMIPLIMAB [Suspect]
     Active Substance: CEMIPLIMAB
     Indication: Squamous cell carcinoma
     Dosage: UNK

REACTIONS (5)
  - Drug reaction with eosinophilia and systemic symptoms [Unknown]
  - Liver disorder [Unknown]
  - Pyrexia [Unknown]
  - Erythema [Unknown]
  - Oral disorder [Unknown]
